FAERS Safety Report 6098965-8 (Version None)
Quarter: 2009Q1

REPORT INFORMATION
  Report Type: 
  Country: None (occurrence: None)
  Receive Date: 20090302
  Receipt Date: 20090220
  Transmission Date: 20090719
  Serious: Yes (Hospitalization, Other)
  Sender: FDA-Public Use
  Company Number: US-ELI_LILLY_AND_COMPANY-US200902002330

PATIENT
  Sex: Female
  Weight: 99.773 kg

DRUGS (26)
  1. CYMBALTA [Suspect]
     Indication: DIABETIC NEUROPATHY
     Dosage: 90 MG, DAILY (1/D)
     Route: 048
     Dates: start: 20050101
  2. KEFLEX [Suspect]
     Indication: LOCALISED INFECTION
     Dosage: UNK, UNK
     Dates: start: 20080709
  3. EXENATIDE [Concomitant]
     Indication: TYPE 2 DIABETES MELLITUS
     Dosage: 5 UG, 2/D
     Route: 058
     Dates: start: 20060101, end: 20060201
  4. EXENATIDE [Concomitant]
     Dosage: 10 UG, 2/D
     Route: 058
     Dates: start: 20060201, end: 20080714
  5. EXENATIDE [Concomitant]
     Dosage: 5 UG, 2/D
     Route: 058
     Dates: start: 20080901, end: 20081001
  6. EXENATIDE [Concomitant]
     Dosage: 10 UG, 2/D
     Route: 058
     Dates: start: 20081001
  7. METFORMIN HCL [Concomitant]
     Indication: TYPE 2 DIABETES MELLITUS
     Dosage: 1000 MG, 2/D
     Route: 048
  8. ACTOS [Concomitant]
     Indication: TYPE 2 DIABETES MELLITUS
     Dates: end: 20080701
  9. COZAAR [Concomitant]
     Indication: HYPERTENSION
     Dosage: 100 MG, DAILY (1/D)
     Route: 048
  10. AMLODIPINE BESYLATE [Concomitant]
     Indication: HYPERTENSION
     Dosage: 5 MG, DAILY (1/D)
     Route: 048
  11. ASPIRIN [Concomitant]
     Dosage: 81 MG, DAILY (1/D)
     Route: 048
  12. FENOFIBRATE [Concomitant]
     Indication: BLOOD TRIGLYCERIDES INCREASED
     Dosage: 134 MG, DAILY (1/D)
     Route: 048
  13. OMEPRAZOLE [Concomitant]
     Indication: GASTROOESOPHAGEAL REFLUX DISEASE
     Dosage: 20 MG, 2/D
     Route: 048
  14. DESIPRAMINE HYDROCHLORIDE [Concomitant]
     Indication: DEPRESSION
     Dosage: 50 MG, DAILY (1/D)
     Route: 048
     Dates: end: 20090207
  15. XANAX XR [Concomitant]
     Indication: ANXIETY
     Dosage: 1 MG, DAILY (1/D)
     Route: 048
  16. XANAX [Concomitant]
     Indication: ANXIETY
     Dosage: 1 MG, AS NEEDED
     Route: 048
  17. AMBIEN [Concomitant]
     Indication: INSOMNIA
     Dosage: 10 MG, EACH EVENING
     Route: 048
  18. IBUPROFEN [Concomitant]
     Indication: OSTEOARTHRITIS
     Dosage: 600 MG, 3/D
     Route: 048
  19. MULTI-VITAMIN [Concomitant]
     Dosage: UNK, DAILY (1/D)
     Route: 048
  20. VITAMIN D [Concomitant]
     Dosage: 2000 U, DAILY (1/D)
     Route: 048
  21. ASCORBIC ACID [Concomitant]
     Dosage: 1000 MG, DAILY (1/D)
     Route: 048
  22. FISH OIL [Concomitant]
     Dosage: 7000 MG, DAILY (1/D)
     Route: 048
  23. FLUOCINONIDE [Concomitant]
     Indication: SEBORRHOEA
     Route: 061
  24. FLUOROMETHOLONE [Concomitant]
     Dosage: UNK, 2/D
     Route: 047
     Dates: start: 20080101
  25. GENTEAL LUBRICANT [Concomitant]
     Indication: DRY EYE
     Route: 047
     Dates: start: 20080101
  26. RESTASIS [Concomitant]
     Indication: DRY EYE
     Route: 047
     Dates: start: 20080101

REACTIONS (10)
  - EYE BURNS [None]
  - INFECTION [None]
  - INJURY CORNEAL [None]
  - KERATOCONJUNCTIVITIS SICCA [None]
  - LIVER DISORDER [None]
  - MULTI-ORGAN FAILURE [None]
  - ORAL CANDIDIASIS [None]
  - PHOTOSENSITIVITY REACTION [None]
  - SCAR [None]
  - STEVENS-JOHNSON SYNDROME [None]
